FAERS Safety Report 6599460-X (Version None)
Quarter: 2010Q1

REPORT INFORMATION
  Report Type: 
  Country: None (occurrence: None)
  Receive Date: 20100224
  Receipt Date: 20100215
  Transmission Date: 20100710
  Serious: Yes (Death)
  Sender: FDA-Public Use
  Company Number: NO-WATSON-2010-02030

PATIENT
  Age: 87 Year
  Sex: Female

DRUGS (2)
  1. RAMIPRIL [Suspect]
     Indication: DRUG USE FOR UNKNOWN INDICATION
     Dosage: UNK
     Route: 065
  2. MAREVAN [Suspect]
     Indication: DRUG USE FOR UNKNOWN INDICATION
     Dosage: UNK
     Route: 065

REACTIONS (4)
  - DEATH [None]
  - GASTROINTESTINAL HAEMORRHAGE [None]
  - MELAENA [None]
  - RENAL FAILURE ACUTE [None]
